FAERS Safety Report 4849218-4 (Version None)
Quarter: 2005Q4

REPORT INFORMATION
  Report Type: 
  Country: None (occurrence: None)
  Receive Date: 20051209
  Receipt Date: 20051129
  Transmission Date: 20060501
  Serious: Yes (Hospitalization)
  Sender: FDA-Public Use
  Company Number: US-MERCK-0512USA00163

PATIENT
  Age: 50 Year
  Sex: Male
  Weight: 109 kg

DRUGS (11)
  1. VIOXX [Suspect]
     Indication: ARTHRITIS
     Route: 048
     Dates: start: 20000101
  2. VIOXX [Suspect]
     Route: 048
     Dates: start: 20000101, end: 20010101
  3. ASPIRIN [Concomitant]
     Route: 048
  4. NITROSTAT [Concomitant]
     Route: 060
  5. DIGOXIN [Concomitant]
     Route: 065
  6. LASIX [Concomitant]
     Route: 048
  7. K-DUR 10 [Concomitant]
     Route: 065
  8. LIPITOR [Concomitant]
     Route: 065
  9. COREG [Concomitant]
     Route: 048
  10. GLUCOTROL XL [Concomitant]
     Route: 065
  11. GLUCOPHAGE [Concomitant]
     Route: 048

REACTIONS (6)
  - ACUTE MYOCARDIAL INFARCTION [None]
  - ANGINA PECTORIS [None]
  - CHRONIC OBSTRUCTIVE PULMONARY DISEASE [None]
  - CORONARY ARTERY DISEASE [None]
  - DIABETIC NEUROPATHY [None]
  - NAUSEA [None]
